FAERS Safety Report 4415198-9 (Version None)
Quarter: 2004Q3

REPORT INFORMATION
  Report Type: 
  Country: None (occurrence: None)
  Receive Date: 20040802
  Receipt Date: 20040719
  Transmission Date: 20050211
  Serious: Yes (Life-Threatening, Other)
  Sender: FDA-Public Use
  Company Number: 04-00371

PATIENT
  Age: 77 Year
  Sex: Female

DRUGS (6)
  1. ALBUTEROL [Suspect]
     Indication: DYSPNOEA
  2. ALBUTEROL [Suspect]
     Indication: WHEEZING
  3. IPRATROPIUM BROMIDE [Suspect]
     Indication: DYSPNOEA
  4. IPRATROPIUM BROMIDE [Suspect]
     Indication: WHEEZING
  5. HYDROCHLOROTHIAZIDE [Concomitant]
  6. UNSPECIFIED DIURETICS [Concomitant]

REACTIONS (20)
  - ASTHMA [None]
  - BLOOD POTASSIUM DECREASED [None]
  - BLOOD SODIUM DECREASED [None]
  - CARDIAC ASTHMA [None]
  - CARDIAC MURMUR [None]
  - CIRCULATORY COLLAPSE [None]
  - COMA [None]
  - CONDITION AGGRAVATED [None]
  - ECHOCARDIOGRAM ABNORMAL [None]
  - FIBRIN D DIMER INCREASED [None]
  - HEART RATE INCREASED [None]
  - HEART RATE IRREGULAR [None]
  - HYPERTROPHY [None]
  - HYPOTENSION [None]
  - HYPOTHERMIA [None]
  - HYPOVOLAEMIA [None]
  - PERIPHERAL COLDNESS [None]
  - PO2 DECREASED [None]
  - PULSE ABNORMAL [None]
  - VENTRICULAR HYPERTROPHY [None]
